FAERS Safety Report 8278717-0 (Version None)
Quarter: 2012Q2

REPORT INFORMATION
  Report Type: 
  Country: None (occurrence: None)
  Receive Date: 20120412
  Receipt Date: 20110826
  Transmission Date: 20120825
  Serious: No
  Sender: FDA-Public Use
  Company Number: US-ASTRAZENECA-2011SE51423

PATIENT
  Age: 26723 Day
  Sex: Female
  Weight: 65.8 kg

DRUGS (5)
  1. VITAMIN D [Concomitant]
  2. NEXIUM [Suspect]
     Indication: GASTROOESOPHAGEAL REFLUX DISEASE
     Route: 048
     Dates: start: 20110822
  3. SYNTHROID [Concomitant]
     Indication: GASTROOESOPHAGEAL REFLUX DISEASE
  4. ASCORBIC ACID [Concomitant]
  5. CALCIUM CARBONATE [Concomitant]

REACTIONS (2)
  - BURNING SENSATION [None]
  - HEADACHE [None]
